FAERS Safety Report 23983392 (Version 2)
Quarter: 2024Q3

REPORT INFORMATION
  Report Type: Report from Study
  Country: US (occurrence: US)
  Receive Date: 20240617
  Receipt Date: 20240711
  Transmission Date: 20241016
  Serious: Yes (Other)
  Sender: MALLINCKRODT
  Company Number: US-MALLINCKRODT-MNK202403858

PATIENT
  Sex: Female

DRUGS (1)
  1. CORTICOTROPIN [Suspect]
     Active Substance: CORTICOTROPIN
     Indication: Punctate keratitis
     Dosage: 80 UNITS
     Route: 058

REACTIONS (4)
  - Glycosylated haemoglobin increased [Unknown]
  - Cushing^s syndrome [Unknown]
  - Cortisol increased [Not Recovered/Not Resolved]
  - Hypertension [Not Recovered/Not Resolved]
